FAERS Safety Report 8251121-7 (Version None)
Quarter: 2012Q1

REPORT INFORMATION
  Report Type: 
  Country: None (occurrence: None)
  Receive Date: 20120328
  Receipt Date: 20120312
  Transmission Date: 20120608
  Serious: Yes (Other)
  Sender: FDA-Public Use
  Company Number: 2012MA003450

PATIENT
  Age: 53 Year
  Sex: Female

DRUGS (1)
  1. GEMCITABINE HYDROCHLORIDE [Suspect]
     Indication: OVARIAN CANCER
     Dosage: 3800 MG; IV
     Route: 042
     Dates: start: 20120210

REACTIONS (3)
  - DIZZINESS [None]
  - ORAL DYSAESTHESIA [None]
  - ALCOHOL POISONING [None]
